FAERS Safety Report 18834403 (Version 1)
Quarter: 2021Q1

REPORT INFORMATION
  Report Type: Spontaneous
  Country: US (occurrence: US)
  Receive Date: 20210203
  Receipt Date: 20210203
  Transmission Date: 20210419
  Serious: Yes (Hospitalization)
  Sender: FDA-Public Use
  Company Number: None

PATIENT
  Age: 63 Year
  Sex: Female
  Weight: 58.5 kg

DRUGS (1)
  1. LOSARTAN. [Suspect]
     Active Substance: LOSARTAN
     Indication: HYPERTENSION
     Dates: start: 20201029, end: 20201030

REACTIONS (7)
  - Ear discomfort [None]
  - Jaw disorder [None]
  - Inflammation [None]
  - Oral pruritus [None]
  - Oral disorder [None]
  - Flushing [None]
  - Cheilitis [None]

NARRATIVE: CASE EVENT DATE: 20201030
